FAERS Safety Report 7931541-8 (Version None)
Quarter: 2011Q4

REPORT INFORMATION
  Report Type: 
  Country: None (occurrence: None)
  Receive Date: 20111121
  Receipt Date: 20111025
  Transmission Date: 20120403
  Serious: Yes (Other)
  Sender: FDA-Public Use
  Company Number: JP-BAYER-2011-108714

PATIENT
  Age: 48 Year
  Sex: Male

DRUGS (3)
  1. NIZATIDINE [Concomitant]
     Indication: PEPTIC ULCER
  2. FEBUXOSTAT [Concomitant]
     Dosage: DAILY DOSE 20 MG
     Dates: start: 20110806, end: 20110820
  3. NAPROXEN SODIUM [Suspect]
     Indication: GOUT
     Dosage: DAILY DOSE 600 MG
     Route: 048
     Dates: start: 20111020

REACTIONS (1)
  - GASTRIC ULCER [None]
